FAERS Safety Report 24228768 (Version 1)
Quarter: 2024Q3

REPORT INFORMATION
  Report Type: Spontaneous
  Country: US (occurrence: US)
  Receive Date: 20240820
  Receipt Date: 20240820
  Transmission Date: 20241017
  Serious: No
  Sender: BAXTER
  Company Number: US-BAXTER-2024BAX021678

PATIENT
  Sex: Male

DRUGS (1)
  1. DEXTROSE [Suspect]
     Active Substance: DEXTROSE\DEXTROSE MONOHYDRATE
     Indication: Hypoglycaemia
     Dosage: (10% DEXTROSE INJECTION USP 500) DOSAGE/STRENGTH ADMINISTERED WAS 3.5 ML/HR
     Route: 042
     Dates: start: 20240529

REACTIONS (1)
  - Drug ineffective [Unknown]
